FAERS Safety Report 24949769 (Version 1)
Quarter: 2025Q1

REPORT INFORMATION
  Report Type: Spontaneous
  Country: US (occurrence: None)
  Receive Date: 20250209
  Receipt Date: 20250209
  Transmission Date: 20250408
  Serious: Yes (Other)
  Sender: FDA-CTU
  Company Number: None

PATIENT
  Age: 76 Year
  Sex: Female

DRUGS (1)
  1. PRAVASTATIN SODIUM [Suspect]
     Active Substance: PRAVASTATIN SODIUM
     Indication: Blood cholesterol increased
     Route: 048
     Dates: start: 20250104, end: 20250208

REACTIONS (8)
  - Diarrhoea [None]
  - Chills [None]
  - Decreased appetite [None]
  - Pain [None]
  - Headache [None]
  - Blood potassium decreased [None]
  - Blood sodium decreased [None]
  - Blood urea decreased [None]

NARRATIVE: CASE EVENT DATE: 20250208
